FAERS Safety Report 5670966-0 (Version None)
Quarter: 2008Q1

REPORT INFORMATION
  Report Type: 
  Country: None (occurrence: None)
  Receive Date: 20080318
  Receipt Date: 20080313
  Transmission Date: 20080703
  Serious: Yes (Other)
  Sender: FDA-Public Use
  Company Number: JP-AVENTIS-200712508JP

PATIENT
  Age: 67 Year
  Sex: Male
  Weight: 57 kg

DRUGS (23)
  1. TAXOTERE [Suspect]
     Route: 041
     Dates: start: 20051011, end: 20051026
  2. LOXONIN                            /00890701/ [Suspect]
     Dosage: DOSE: 3 TABLETS
     Route: 048
     Dates: end: 20051017
  3. PENTAGIN [Suspect]
     Indication: PAIN
     Dosage: DOSE: 25 MG
     Route: 048
     Dates: start: 20051017
  4. PENTAGIN [Suspect]
     Dosage: DOSE: 1/4 A
     Route: 041
  5. MS CONTIN [Suspect]
     Indication: PAIN
     Dosage: DOSE: 10 MG
     Route: 048
     Dates: start: 20051020, end: 20051028
  6. MORPHES [Suspect]
     Indication: PAIN
     Dosage: DOSE: 10 MG
     Route: 048
     Dates: start: 20051028
  7. RADIATION THERAPY [Concomitant]
     Dosage: DOSE: 30 GY
     Dates: start: 20050101
  8. ALFAROL [Concomitant]
     Indication: DIALYSIS
     Dosage: DOSE: 1C
     Route: 048
     Dates: end: 20051027
  9. LASIX [Concomitant]
     Dosage: DOSE: 1 TABLET
     Route: 048
  10. LASIX [Concomitant]
     Dosage: DOSE: 1 A
     Route: 041
  11. MICARDIS [Concomitant]
     Dosage: DOSE: 0.5 TABLET
     Route: 048
  12. ALLOPURINOL [Concomitant]
     Dosage: DOSE: 1 TABLET
     Route: 048
     Dates: end: 20051030
  13. KREMEZIN [Concomitant]
     Dosage: DOSE: 3 PACKAGES
     Route: 048
     Dates: end: 20051030
  14. URINORM [Concomitant]
     Dosage: DOSE: 0.5 TABLET
     Route: 048
     Dates: start: 20051017, end: 20051030
  15. URALYT-U [Concomitant]
     Dosage: DOSE: 1 PACKAGE
     Route: 048
     Dates: start: 20051017, end: 20051030
  16. TRANSAMIN [Concomitant]
     Dosage: DOSE: 15 ML
     Route: 048
  17. CLARITHROMYCIN [Concomitant]
     Dosage: DOSE: 200 MG
     Route: 048
     Dates: start: 20051018, end: 20051022
  18. METOCLOPRAMIDE HCL [Concomitant]
     Dosage: DOSE: 5 MG
     Route: 048
     Dates: start: 20051019
  19. SALCOAT [Concomitant]
     Dosage: DOSE: 1C
     Dates: start: 20051024
  20. ALLOID G [Concomitant]
     Dosage: DOSE: 20 ML
     Dates: start: 20051028, end: 20051028
  21. EPOGIN [Concomitant]
     Route: 058
  22. SULPERAZONE [Concomitant]
     Dosage: DOSE: 1G
     Dates: start: 20051022
  23. FESIN [Concomitant]
     Dosage: DOSE: 1 A
     Route: 041
     Dates: start: 20051029

REACTIONS (2)
  - GASTRIC ULCER HAEMORRHAGE [None]
  - RENAL IMPAIRMENT [None]
